FAERS Safety Report 5772243-6 (Version None)
Quarter: 2008Q2

REPORT INFORMATION
  Report Type: 
  Country: None (occurrence: None)
  Receive Date: 20080613
  Receipt Date: 20080604
  Transmission Date: 20081010
  Serious: Yes (Other)
  Sender: FDA-Public Use
  Company Number: PHHY2008BR08579

PATIENT
  Sex: Male
  Weight: 94 kg

DRUGS (4)
  1. FORASEQ [Suspect]
     Indication: LUNG INFECTION
     Dosage: 12/400MCG
     Dates: start: 20050101
  2. MAREVAN [Concomitant]
     Indication: RED BLOOD CELL COUNT DECREASED
     Dosage: 1TAB/DAY
     Route: 048
     Dates: start: 20050101
  3. ATENOLOL [Concomitant]
     Indication: BLOOD PRESSURE INCREASED
     Dosage: UNK
     Route: 048
     Dates: start: 20050101
  4. CAPTOPRIL [Concomitant]
     Dosage: 25 MG, UNK

REACTIONS (6)
  - BLOOD PRESSURE INCREASED [None]
  - DRUG INEFFECTIVE [None]
  - FUNGAL INFECTION [None]
  - HAEMOPTYSIS [None]
  - NASOPHARYNGITIS [None]
  - WHEEZING [None]
